FAERS Safety Report 10783917 (Version 2)
Quarter: 2015Q2

REPORT INFORMATION
  Report Type: Spontaneous
  Country: US (occurrence: US)
  Receive Date: 20150210
  Receipt Date: 20150601
  Transmission Date: 20150821
  Serious: No
  Sender: FDA-Public Use
  Company Number: US-ASTRAZENECA-2015SE10164

PATIENT
  Sex: Female

DRUGS (3)
  1. FEMARA [Suspect]
     Active Substance: LETROZOLE
     Route: 065
  2. FEMARA [Suspect]
     Active Substance: LETROZOLE
     Route: 065
  3. ARIMIDEX [Suspect]
     Active Substance: ANASTROZOLE
     Route: 048

REACTIONS (7)
  - Arthralgia [Unknown]
  - Asthenia [Unknown]
  - Insomnia [Unknown]
  - Alopecia [Unknown]
  - Onychoclasis [Unknown]
  - Pain [Unknown]
  - Feeling abnormal [Unknown]
